FAERS Safety Report 12774981 (Version 2)
Quarter: 2016Q4

REPORT INFORMATION
  Report Type: Spontaneous
  Country: US (occurrence: US)
  Receive Date: 20160923
  Receipt Date: 20161109
  Transmission Date: 20170207
  Serious: No
  Sender: FDA-Public Use
  Company Number: US-TEVA-688504ACC

PATIENT
  Age: 29 Year
  Sex: Female
  Weight: 82.63 kg

DRUGS (2)
  1. WOMEN^S ONE A DAY MULTIVITAMIN [Concomitant]
  2. PLAN B ONE-STEP [Suspect]
     Active Substance: LEVONORGESTREL
     Indication: POST COITAL CONTRACEPTION
     Dates: start: 20160820, end: 20160820

REACTIONS (2)
  - Premenstrual cramps [Not Recovered/Not Resolved]
  - Dysmenorrhoea [Recovered/Resolved]

NARRATIVE: CASE EVENT DATE: 20160823
